FAERS Safety Report 9106566 (Version 1)
Quarter: 2013Q1

REPORT INFORMATION
  Report Type: Spontaneous
  Country: GB (occurrence: GB)
  Receive Date: 20130222
  Receipt Date: 20130222
  Transmission Date: 20140127
  Serious: Yes (Other)
  Sender: FDA-Public Use
  Company Number: GB-ELI_LILLY_AND_COMPANY-GB201302003198

PATIENT
  Sex: Female

DRUGS (3)
  1. HUMALOG LISPRO [Suspect]
  2. LANTUS [Concomitant]
  3. ASPIRIN [Concomitant]

REACTIONS (4)
  - Myocardial infarction [Unknown]
  - Blood glucose increased [Unknown]
  - Blood disorder [Unknown]
  - Blood pressure [Unknown]
